FAERS Safety Report 4847378-2 (Version None)
Quarter: 2005Q4

REPORT INFORMATION
  Report Type: 
  Country: None (occurrence: None)
  Receive Date: 20051205
  Receipt Date: 20051122
  Transmission Date: 20060501
  Serious: Yes (Hospitalization, Other)
  Sender: FDA-Public Use
  Company Number: 2005160356

PATIENT
  Age: 65 Year
  Sex: Male

DRUGS (10)
  1. VIAGRA [Suspect]
     Indication: ERECTILE DYSFUNCTION
     Dosage: DAILY INTERVAL, EVERY DAY) ORAL
     Route: 048
     Dates: start: 20030101
  2. LASIX [Concomitant]
  3. LISINOPRIL [Concomitant]
  4. LIPITOR [Concomitant]
  5. COREG [Concomitant]
  6. DIGOXIN [Concomitant]
  7. PLAVIX [Concomitant]
  8. POTASSIUM [Concomitant]
  9. ALL OTHER THERAPEUTIC PRODUCTS [Concomitant]
  10. GLUCERNA ^ABBOTT^ (AMINO ACIDS NOS, FRUCTOSE, MINERALS, NOS, SAFFLOWER [Concomitant]

REACTIONS (5)
  - CARDIAC FAILURE CONGESTIVE [None]
  - CATARACT [None]
  - DEVICE RELATED INFECTION [None]
  - DRUG INEFFECTIVE [None]
  - PACEMAKER COMPLICATION [None]
